FAERS Safety Report 8177194-8 (Version None)
Quarter: 2012Q1

REPORT INFORMATION
  Report Type: 
  Country: None (occurrence: None)
  Receive Date: 20120124
  Receipt Date: 20111220
  Transmission Date: 20120608
  Serious: No
  Sender: FDA-Public Use
  Company Number: US-007190

PATIENT
  Age: 70 Year
  Sex: Male
  Weight: 99.7913 kg

DRUGS (12)
  1. OMEPRAZOLE [Concomitant]
  2. FLOMAX [Concomitant]
  3. COQ10 [Concomitant]
  4. DEGARELIX (240 MG, 80 MG) [Suspect]
     Indication: PROSTATE CANCER
     Dosage: (240 MG 1X SUBCUTANEOUS) ; (80 MG 1X/MONTH SUBCUTANEOUS)
     Route: 058
     Dates: start: 20110602, end: 20110602
  5. DEGARELIX (240 MG, 80 MG) [Suspect]
     Indication: PROSTATE CANCER
     Dosage: (240 MG 1X SUBCUTANEOUS) ; (80 MG 1X/MONTH SUBCUTANEOUS)
     Route: 058
     Dates: start: 20110701, end: 20111111
  6. SIMVASTATIN [Concomitant]
  7. DIOVAN [Concomitant]
  8. ASPIRIN [Concomitant]
  9. GRAPE SEED /01364603/ [Concomitant]
  10. PENTA-TRIAMTERENE HCTZ [Concomitant]
  11. NIACIN [Concomitant]
  12. VIAGRA [Concomitant]

REACTIONS (1)
  - DRUG INEFFECTIVE [None]
